FAERS Safety Report 8306371-8 (Version None)
Quarter: 2012Q2

REPORT INFORMATION
  Report Type: 
  Country: None (occurrence: None)
  Receive Date: 20120423
  Receipt Date: 20120416
  Transmission Date: 20120825
  Serious: Yes (Death, Life-Threatening)
  Sender: FDA-Public Use
  Company Number: US-MERCK-1204USA02209

PATIENT
  Age: 36 Year
  Sex: Male

DRUGS (1)
  1. ISENTRESS [Suspect]
     Route: 048
     Dates: start: 20120227, end: 20120308

REACTIONS (1)
  - DEATH [None]
